FAERS Safety Report 10713122 (Version 1)
Quarter: 2015Q1

REPORT INFORMATION
  Report Type: Spontaneous
  Country: US (occurrence: US)
  Receive Date: 20150115
  Receipt Date: 20150115
  Transmission Date: 20150721
  Serious: Yes (Other)
  Sender: FDA-Public Use
  Company Number: US-SA-2015SA004061

PATIENT
  Age: 63 Year
  Sex: Female

DRUGS (1)
  1. ALLEGRA [Suspect]
     Active Substance: FEXOFENADINE HYDROCHLORIDE
     Indication: MULTIPLE ALLERGIES
     Dosage: TAKEN FROM- 40 YEARS AGO
     Route: 048

REACTIONS (4)
  - Dyspnoea [Unknown]
  - Visual acuity reduced [Unknown]
  - Oropharyngeal pain [Unknown]
  - Renal disorder [Unknown]
